FAERS Safety Report 8029860-2 (Version None)
Quarter: 2012Q1

REPORT INFORMATION
  Report Type: 
  Country: None (occurrence: None)
  Receive Date: 20120109
  Receipt Date: 20111228
  Transmission Date: 20120608
  Serious: Yes (Hospitalization)
  Sender: FDA-Public Use
  Company Number: AU-ELI_LILLY_AND_COMPANY-AU201201000629

PATIENT
  Sex: Male

DRUGS (2)
  1. HUMALOG MIX 75/25 [Suspect]
     Dosage: UNK
  2. HUMALOG [Suspect]
     Dosage: 32 U, SINGLE
     Dates: start: 20111227, end: 20111227

REACTIONS (4)
  - HOSPITALISATION [None]
  - DRUG PRESCRIBING ERROR [None]
  - HYPOGLYCAEMIA [None]
  - WRONG DRUG ADMINISTERED [None]
